FAERS Safety Report 8962513 (Version 1)
Quarter: 2012Q4

REPORT INFORMATION
  Report Type: Spontaneous
  Country: CN (occurrence: None)
  Receive Date: 20121206
  Receipt Date: 20121206
  Transmission Date: 20130627
  Serious: Yes (Death)
  Sender: FDA-Public Use
  Company Number: FK201203604

PATIENT
  Age: 73 Year
  Sex: Male

DRUGS (6)
  1. HEPARIN SODIUM [Suspect]
     Indication: PRODUCT USED FOR UNKNOWN INDICATION
     Dosage: 5000 USP Units, 1 in 1 Once, Intravenous (not otherwise specified)
     Route: 042
     Dates: start: 200907, end: 200907
  2. TIROFIBAN [Suspect]
     Indication: PRODUCT USED FOR UNKNOWN INDICATION
     Dosage: 25 ug/kg, 1 in 1 Once, Intravenous bolus
     Route: 040
     Dates: start: 200907, end: 200907
  3. TIROFIBAN [Suspect]
     Indication: PRODUCT USED FOR UNKNOWN INDICATION
     Dosage: 0.15 ug/kg/min infusion, Intravenous drip
     Route: 041
     Dates: start: 200907, end: 200907
  4. DOPAMINE [Concomitant]
  5. ACETYLSALICYLIC ACID [Concomitant]
  6. CLOPIDOGREL [Concomitant]

REACTIONS (1)
  - Pulmonary alveolar haemorrhage [None]
